FAERS Safety Report 9013327 (Version 1)
Quarter: 2013Q1

REPORT INFORMATION
  Report Type: Spontaneous
  Country: US (occurrence: US)
  Receive Date: 20130115
  Receipt Date: 20130115
  Transmission Date: 20140127
  Serious: Yes (Other)
  Sender: FDA-Public Use
  Company Number: US-009507513-1012USA00527

PATIENT
  Sex: Male
  Weight: 89.36 kg

DRUGS (2)
  1. SINGULAIR [Suspect]
     Indication: ASTHMA
     Dosage: 5 MG, ONCE
     Route: 048
     Dates: start: 20080122, end: 20091117
  2. SINGULAIR [Suspect]
     Indication: HYPERSENSITIVITY

REACTIONS (12)
  - Suicidal ideation [Recovered/Resolved]
  - Anger [Recovered/Resolved]
  - Anxiety [Recovering/Resolving]
  - Back pain [Recovering/Resolving]
  - Constipation [Recovering/Resolving]
  - Eye movement disorder [Recovering/Resolving]
  - Mood altered [Recovered/Resolved]
  - Reaction to preservatives [Unknown]
  - Disturbance in attention [Recovered/Resolved]
  - Abdominal pain upper [Recovered/Resolved]
  - Nausea [Recovered/Resolved]
  - Vomiting [Recovered/Resolved]
